FAERS Safety Report 4905747-6 (Version None)
Quarter: 2006Q1

REPORT INFORMATION
  Report Type: 
  Country: None (occurrence: None)
  Receive Date: 20060208
  Receipt Date: 20060125
  Transmission Date: 20060701
  Serious: Yes (Life-Threatening)
  Sender: FDA-Public Use
  Company Number: DE-MERCK-0601DEU00117

PATIENT
  Age: 65 Year
  Sex: Female
  Weight: 114 kg

DRUGS (5)
  1. ZETIA [Suspect]
     Indication: HYPERLIPIDAEMIA
     Route: 048
     Dates: start: 20060103, end: 20060109
  2. ENALAPRIL MALEATE [Concomitant]
     Indication: HYPERTENSION
     Route: 048
  3. MEVACOR [Concomitant]
     Indication: HYPERLIPIDAEMIA
     Route: 048
     Dates: end: 20051211
  4. LOVASTATIN [Suspect]
     Indication: HYPERLIPIDAEMIA
     Route: 048
     Dates: start: 20051212, end: 20051227
  5. LOVASTATIN [Suspect]
     Route: 048
     Dates: start: 20060103, end: 20060109

REACTIONS (4)
  - CHILLS [None]
  - DYSPHAGIA [None]
  - HYPERLIPIDAEMIA [None]
  - SWELLING FACE [None]
